FAERS Safety Report 17721279 (Version 2)
Quarter: 2020Q3

REPORT INFORMATION
  Report Type: Spontaneous
  Country: US (occurrence: US)
  Receive Date: 20200429
  Receipt Date: 20200828
  Transmission Date: 20201102
  Serious: Yes (Hospitalization)
  Sender: FDA-Public Use
  Company Number: US-ABBVIE-20K-163-3382058-00

PATIENT
  Age: 66 Year
  Sex: Male
  Weight: 101.24 kg

DRUGS (3)
  1. LIPITOR [Concomitant]
     Active Substance: ATORVASTATIN CALCIUM
     Indication: BLOOD CHOLESTEROL INCREASED
  2. AMLODIPINE [Concomitant]
     Active Substance: AMLODIPINE BESYLATE
     Indication: HYPERTENSION
  3. LUPRON DEPOT [Suspect]
     Active Substance: LEUPROLIDE ACETATE
     Indication: PROSTATE CANCER
     Route: 050
     Dates: start: 20200127, end: 20200127

REACTIONS (11)
  - Arthralgia [Not Recovered/Not Resolved]
  - Rash [Not Recovered/Not Resolved]
  - Eosinophil count increased [Unknown]
  - Lip swelling [Recovered/Resolved]
  - Granulocyte count increased [Unknown]
  - International normalised ratio increased [Unknown]
  - Peripheral swelling [Not Recovered/Not Resolved]
  - Prothrombin time prolonged [Unknown]
  - Hot flush [Recovering/Resolving]
  - Neutrophil count increased [Unknown]
  - C-reactive protein increased [Unknown]

NARRATIVE: CASE EVENT DATE: 2020
